FAERS Safety Report 5562976-9 (Version None)
Quarter: 2007Q4

REPORT INFORMATION
  Report Type: 
  Country: None (occurrence: None)
  Receive Date: 20071022
  Receipt Date: 20071210
  Transmission Date: 20080405
  Serious: Yes (Death)
  Sender: FDA-Public Use
  Company Number: US-BRACCO-BDI-010400

PATIENT
  Sex: Female

DRUGS (9)
  1. ISOVUE-128 [Suspect]
     Indication: ANGIOGRAM
     Route: 042
     Dates: start: 20071004, end: 20071004
  2. ISOVUE-128 [Suspect]
     Indication: ANGIOPLASTY
     Route: 042
     Dates: start: 20071004, end: 20071004
  3. ISOVUE-128 [Suspect]
     Indication: ANASTOMOTIC STENOSIS
     Route: 042
     Dates: start: 20071004, end: 20071004
  4. ALBUTEROL [Concomitant]
     Route: 065
     Dates: start: 20071004, end: 20071004
  5. SOLU-MEDROL [Concomitant]
     Route: 042
     Dates: start: 20071004
  6. EPINEPHRINE [Concomitant]
     Route: 065
     Dates: start: 20071004
  7. ATROVENT [Concomitant]
     Route: 065
     Dates: start: 20071004
  8. BENADRYL [Concomitant]
     Route: 065
     Dates: start: 20071004
  9. INSULIN [Concomitant]
     Route: 065

REACTIONS (1)
  - ANAPHYLACTIC SHOCK [None]
